FAERS Safety Report 12620154 (Version 1)
Quarter: 2016Q3

REPORT INFORMATION
  Report Type: Spontaneous
  Country: US (occurrence: US)
  Receive Date: 20160803
  Receipt Date: 20160803
  Transmission Date: 20161109
  Serious: No
  Sender: FDA-Public Use
  Company Number: US-ENDO PHARMACEUTICALS INC.-2015-002759

PATIENT
  Sex: Male
  Weight: 99.88 kg

DRUGS (6)
  1. TESTOPEL [Suspect]
     Active Substance: TESTOSTERONE
     Indication: BLOOD TESTOSTERONE DECREASED
     Route: 065
     Dates: start: 2015
  2. PSYLLIUM [Concomitant]
     Active Substance: PLANTAGO SEED
     Indication: CONSTIPATION
  3. TESTOPEL [Suspect]
     Active Substance: TESTOSTERONE
     Indication: HYPOGONADISM
  4. OMEPRAZOLE. [Concomitant]
     Active Substance: OMEPRAZOLE
     Indication: DYSPEPSIA
  5. ACETAMINOPHEN #2 [Concomitant]
     Indication: BACK PAIN
  6. ACETAMINOPHEN #2 [Concomitant]
     Indication: ARTHRALGIA

REACTIONS (2)
  - Erectile dysfunction [Not Recovered/Not Resolved]
  - Prescribed overdose [Not Recovered/Not Resolved]

NARRATIVE: CASE EVENT DATE: 2015
